FAERS Safety Report 18039763 (Version 1)
Quarter: 2020Q3

REPORT INFORMATION
  Report Type: Spontaneous
  Country: CA (occurrence: CA)
  Receive Date: 20200717
  Receipt Date: 20200717
  Transmission Date: 20201103
  Serious: Yes (Other)
  Sender: FDA-Public Use
  Company Number: CA-PFIZER INC-2020086747

PATIENT
  Age: 53 Year
  Sex: Female

DRUGS (2)
  1. INFLECTRA [Concomitant]
     Active Substance: INFLIXIMAB-DYYB
     Indication: PSORIASIS
     Dosage: 375 MG, 0, 2, 6 WEEKS, THEN EVERY 8 WEEKS
  2. METHOTREXATE SODIUM. [Suspect]
     Active Substance: METHOTREXATE SODIUM
     Indication: PSORIASIS
     Dosage: 22.5 MG, WEEKLY
     Route: 048
     Dates: start: 201705, end: 201912

REACTIONS (8)
  - Influenza [Unknown]
  - Mean cell haemoglobin increased [Unknown]
  - Drug ineffective [Recovering/Resolving]
  - Red blood cell count decreased [Unknown]
  - Lymphocyte morphology abnormal [Recovering/Resolving]
  - Skin lesion [Unknown]
  - Blood urea decreased [Unknown]
  - Mean cell volume increased [Unknown]

NARRATIVE: CASE EVENT DATE: 20191119
